FAERS Safety Report 17140803 (Version 1)
Quarter: 2019Q4

REPORT INFORMATION
  Report Type: Spontaneous
  Country: US (occurrence: US)
  Receive Date: 20191211
  Receipt Date: 20191211
  Transmission Date: 20200122
  Serious: Yes (Hospitalization)
  Sender: FDA-Public Use
  Company Number: US-MYLANLABS-2019M1121959

PATIENT
  Age: 48 Year
  Sex: Male

DRUGS (5)
  1. ACETYLCYSTEINE. [Suspect]
     Active Substance: ACETYLCYSTEINE
     Indication: PANCREATIC CARCINOMA METASTATIC
     Route: 065
  2. ABRAXANE [Concomitant]
     Active Substance: PACLITAXEL
     Indication: PANCREATIC CARCINOMA METASTATIC
     Route: 065
  3. GEMCITABINE. [Concomitant]
     Active Substance: GEMCITABINE
     Indication: PANCREATIC CARCINOMA METASTATIC
     Route: 065
  4. MISTLETOE [Suspect]
     Active Substance: VISCUM ALBUM FRUITING TOP
     Indication: PANCREATIC CARCINOMA METASTATIC
     Route: 042
  5. ZINC. [Suspect]
     Active Substance: ZINC
     Indication: PANCREATIC CARCINOMA METASTATIC
     Route: 042

REACTIONS (1)
  - Interstitial lung disease [Unknown]
